FAERS Safety Report 24253491 (Version 3)
Quarter: 2024Q3

REPORT INFORMATION
  Report Type: Spontaneous
  Country: US (occurrence: US)
  Receive Date: 20240827
  Receipt Date: 20240910
  Transmission Date: 20241016
  Serious: No
  Sender: ALIMERA
  Company Number: US-ALIMERA SCIENCES INC.-US-A16013-24-000461

PATIENT
  Age: 75 Year
  Sex: Female

DRUGS (1)
  1. YUTIQ [Suspect]
     Active Substance: FLUOCINOLONE ACETONIDE
     Indication: Uveitis
     Dosage: 0.18 MILLIGRAM, SINGLE - LEFT EYE
     Route: 031
     Dates: start: 20240403

REACTIONS (2)
  - Corneal oedema [Unknown]
  - Device dislocation [Unknown]

NARRATIVE: CASE EVENT DATE: 20240624
